FAERS Safety Report 20418564 (Version 2)
Quarter: 2022Q1

REPORT INFORMATION
  Report Type: Spontaneous
  Country: US (occurrence: US)
  Receive Date: 20220202
  Receipt Date: 20220217
  Transmission Date: 20220423
  Serious: No
  Sender: FDA-Public Use
  Company Number: US-009507513-2201USA006775

PATIENT
  Sex: Female
  Weight: 114 kg

DRUGS (8)
  1. KEYTRUDA [Suspect]
     Active Substance: PEMBROLIZUMAB
     Indication: Endometrial cancer
     Dosage: 200 MILLIGRAM, EVERY 21 DAYS (Q3WEEK)
     Route: 042
     Dates: start: 20210630, end: 20211106
  2. KEYTRUDA [Suspect]
     Active Substance: PEMBROLIZUMAB
     Indication: Ovarian cancer
  3. LENVATINIB MESYLATE [Suspect]
     Active Substance: LENVATINIB MESYLATE
     Indication: Endometrial cancer
     Dosage: QD
     Route: 048
     Dates: start: 20210630
  4. LENVATINIB MESYLATE [Suspect]
     Active Substance: LENVATINIB MESYLATE
     Indication: Ovarian cancer
  5. GABAPENTIN [Concomitant]
     Active Substance: GABAPENTIN
     Dosage: DOSE 300 (UNIT NOT PROVIDED), TID, TOTAL DAILY DOSE 900 (UNIT NOT PROVIDED)
     Route: 048
  6. HYDROCHLOROTHIAZIDE [Concomitant]
     Active Substance: HYDROCHLOROTHIAZIDE
     Dosage: 25-40 (UNIT NOT PROVIDED), QID, TOTAL DAILY DOSAGE 100-80 (UNIT NOT PROVIDED)
     Route: 048
  7. NEXIUM I.V. [Concomitant]
     Active Substance: ESOMEPRAZOLE SODIUM
     Dosage: DOSE 40 (UNIT NOT PROVIDED), DAILY
     Route: 048
  8. MAGNESIUM LACTATE [Concomitant]
     Active Substance: MAGNESIUM LACTATE
     Dosage: DOSE 84 (UNIT NOT PROVIDED), TOTAL DAILY DOSE 336 (UNIT NOT PROVIDED)
     Route: 048

REACTIONS (4)
  - Dermatophytosis [Recovering/Resolving]
  - Papule [Recovering/Resolving]
  - Dermatitis [Recovering/Resolving]
  - Product use in unapproved indication [Unknown]

NARRATIVE: CASE EVENT DATE: 20210101
